FAERS Safety Report 4687863-X (Version None)
Quarter: 2005Q2

REPORT INFORMATION
  Report Type: 
  Country: None (occurrence: None)
  Receive Date: 20050607
  Receipt Date: 20050601
  Transmission Date: 20051028
  Serious: Yes (Death)
  Sender: FDA-Public Use
  Company Number: TCI2004M01521

PATIENT
  Age: 89 Year
  Sex: Male

DRUGS (11)
  1. LEUPROLIDE ACETATE [Suspect]
     Indication: PROSTATE CANCER
     Dosage: 11.25 MG (11.25 MG, 1 IN 12 WK) SUBCUTANEOUS
     Route: 058
     Dates: start: 20040107, end: 20040330
  2. CASODEX [Concomitant]
  3. BAYASPIRIN (ACETYLSALICYLIC ACID) (ENTERIC-COATED TABLET) [Concomitant]
  4. ZANTAC (RANITIDINE HYDROCHLORIDE) (TABLETS) [Concomitant]
  5. FLUITRAN (TRICHLORMETHIAZIDE) (TABLETS) [Concomitant]
  6. MUCOSOLATE L (AMBROXOL HYDROCHLORIDE) (SUSTAINED-RELEASE CAPSULE) [Concomitant]
  7. CALFALEAD (ALFACALCIDOL) (CAPSULES) [Concomitant]
  8. DIOVAN [Concomitant]
  9. HOKUNALIN (TULOBUTEROL HYDROCHLORIDE) (POULTICE OF PATCH) [Concomitant]
  10. HARNAL (TAMSULOSIN HYDROCHLORIDE) (CAPSULES) [Concomitant]
  11. TERSIGAN (OXITROPIUM BROMIDE) (INHALANT) [Concomitant]

REACTIONS (1)
  - ACUTE RESPIRATORY FAILURE [None]
